FAERS Safety Report 25950248 (Version 1)
Quarter: 2025Q4

REPORT INFORMATION
  Report Type: Spontaneous
  Country: EU (occurrence: EU)
  Receive Date: 20251022
  Receipt Date: 20251022
  Transmission Date: 20260117
  Serious: Yes (Hospitalization)
  Sender: JOHNSON AND JOHNSON
  Company Number: EU-MYLANLABS-2025M1086796

PATIENT
  Sex: Male

DRUGS (11)
  1. RISPERIDONE [Suspect]
     Active Substance: RISPERIDONE
     Indication: Schizophrenia
     Dosage: UNK
  2. RISPERIDONE [Suspect]
     Active Substance: RISPERIDONE
     Dosage: 8 MILLIGRAM, QD (3-0-5 MG)
  3. RISPERIDONE [Suspect]
     Active Substance: RISPERIDONE
     Dosage: UNK (DOSE REDUCED)
  4. RISPERIDONE [Suspect]
     Active Substance: RISPERIDONE
  5. RISPERIDONE [Suspect]
     Active Substance: RISPERIDONE
  6. RISPERIDONE [Suspect]
     Active Substance: RISPERIDONE
  7. CLOZAPINE [Suspect]
     Active Substance: CLOZAPINE
     Indication: Schizophrenia
     Dosage: UNK, QD (50 - 50 - 175 MG THEN 00 - 50 - 225 MG)
  8. CARIPRAZINE [Suspect]
     Active Substance: CARIPRAZINE
     Indication: Schizophrenia
     Dosage: 6 MILLIGRAM, AM (MAXIMUM DOSE OF 6 MG/DAY)
  9. CARIPRAZINE [Suspect]
     Active Substance: CARIPRAZINE
     Dosage: 4.5 MILLIGRAM, QD (DAILY)
  10. CARIPRAZINE [Suspect]
     Active Substance: CARIPRAZINE
     Dosage: 3 MILLIGRAM, QD (DAILY) (DOSE REDUCED)
  11. LORAZEPAM [Concomitant]
     Active Substance: LORAZEPAM
     Indication: Product used for unknown indication
     Dosage: 3 MILLIGRAM, QD (1-0-1 MG)

REACTIONS (13)
  - Rehabilitation therapy [Recovered/Resolved]
  - Sedation [Recovered/Resolved]
  - Orthostatic hypotension [Unknown]
  - Confusional state [Unknown]
  - Fatigue [Unknown]
  - Bradyphrenia [Unknown]
  - Disturbance in attention [Unknown]
  - Mental fatigue [Unknown]
  - Dyslipidaemia [Unknown]
  - Hypovitaminosis [Unknown]
  - Weight increased [Recovering/Resolving]
  - Dizziness [Unknown]
  - Drug ineffective [Unknown]
